FAERS Safety Report 6631955-2 (Version None)
Quarter: 2010Q1

REPORT INFORMATION
  Report Type: 
  Country: None (occurrence: None)
  Receive Date: 20100312
  Receipt Date: 20090608
  Transmission Date: 20100710
  Serious: No
  Sender: FDA-Public Use
  Company Number: US-BIOGENIDEC-2009BI017246

PATIENT
  Sex: Male

DRUGS (1)
  1. AVONEX [Suspect]
     Route: 030

REACTIONS (4)
  - AXILLARY MASS [None]
  - FATIGUE [None]
  - INFLUENZA LIKE ILLNESS [None]
  - PYREXIA [None]
